FAERS Safety Report 6141720-0 (Version None)
Quarter: 2009Q2

REPORT INFORMATION
  Report Type: 
  Country: None (occurrence: None)
  Receive Date: 20090402
  Receipt Date: 20090327
  Transmission Date: 20091009
  Serious: Yes (Hospitalization)
  Sender: FDA-Public Use
  Company Number: US-ELI_LILLY_AND_COMPANY-US200902006625

PATIENT
  Sex: Female
  Weight: 90.703 kg

DRUGS (14)
  1. HUMALOG [Suspect]
     Indication: DIABETES MELLITUS
     Dosage: UNK, UNK
     Dates: end: 20090201
  2. HUMALOG [Suspect]
     Dosage: UNK, DAILY (1/D)
  3. HUMALOG [Suspect]
  4. FORTEO [Suspect]
  5. SIMVASTATIN [Concomitant]
     Dosage: 40 MG, DAILY (1/D)
  6. PRILOSEC [Concomitant]
     Dosage: 40 MG, DAILY (1/D)
  7. VALIUM [Concomitant]
     Dosage: 5 MG, AS NEEDED
  8. LORTAB [Concomitant]
     Dosage: UNK, AS NEEDED
  9. VITAMIN B-12 [Concomitant]
     Dosage: 500 MG, 2/D
  10. HYDROCHLOROTHIAZIDE [Concomitant]
     Dosage: 25 MG, DAILY (1/D)
  11. CALCIUM [Concomitant]
     Dosage: 500 MG, DAILY (1/D)
  12. MULTI-VITAMIN [Concomitant]
     Dosage: UNK, DAILY (1/D)
  13. LYRICA [Concomitant]
     Dosage: 100 MG, UNK
  14. GLUCAGON [Concomitant]

REACTIONS (3)
  - ASTHENIA [None]
  - CORONARY ARTERY DISEASE [None]
  - VISUAL ACUITY REDUCED [None]
